FAERS Safety Report 14128668 (Version 1)
Quarter: 2017Q4

REPORT INFORMATION
  Report Type: Spontaneous
  Country: US (occurrence: US)
  Receive Date: 20171026
  Receipt Date: 20171026
  Transmission Date: 20180321
  Serious: Yes (Other)
  Sender: FDA-Public Use
  Company Number: US-PFIZER INC-2017460600

PATIENT

DRUGS (3)
  1. LYRICA [Suspect]
     Active Substance: PREGABALIN
     Indication: BACK PAIN
     Dosage: 275 MG, ONCE A DAY IN THE AFTERNOON
  2. LYRICA [Suspect]
     Active Substance: PREGABALIN
     Dosage: 150-900 MG
  3. LYRICA [Suspect]
     Active Substance: PREGABALIN
     Dosage: 1800 MG, UNK

REACTIONS (4)
  - Drug abuse [Unknown]
  - Euphoric mood [Unknown]
  - Malaise [Unknown]
  - Logorrhoea [Unknown]
